FAERS Safety Report 10728192 (Version 1)
Quarter: 2015Q1

REPORT INFORMATION
  Report Type: Spontaneous
  Country: US (occurrence: US)
  Receive Date: 20150121
  Receipt Date: 20150121
  Transmission Date: 20150721
  Serious: No
  Sender: FDA-Public Use
  Company Number: US-BAUSCH-BL-2014-010448

PATIENT
  Sex: Female

DRUGS (2)
  1. PROLENSA [Suspect]
     Active Substance: BROMFENAC SODIUM
     Indication: POSTOPERATIVE CARE
     Route: 047
     Dates: start: 201411
  2. PREDNISOLONE OPHTHALMIC SOLUTION [Suspect]
     Active Substance: PREDNISOLONE
     Indication: POSTOPERATIVE CARE
     Route: 047

REACTIONS (1)
  - Hypoaesthesia eye [Unknown]

NARRATIVE: CASE EVENT DATE: 2014
